FAERS Safety Report 8581745-9 (Version None)
Quarter: 2012Q3

REPORT INFORMATION
  Report Type: 
  Country: None (occurrence: None)
  Receive Date: 20120801
  Receipt Date: 20120801
  Transmission Date: 20120928
  Serious: Yes (Death)
  Sender: FDA-Public Use
  Company Number: None

PATIENT
  Sex: Female
  Weight: 84 kg

DRUGS (13)
  1. VIMPAT [Suspect]
     Indication: STATUS EPILEPTICUS
     Dosage: 200MG EVERY 12 HOURS IV
     Route: 042
     Dates: start: 20120705, end: 20120707
  2. LEVOTHYROXINE SODIUM [Concomitant]
  3. PROPOFOL [Concomitant]
  4. HEPARIN [Concomitant]
  5. AZTREONAM [Concomitant]
  6. PREVACID [Concomitant]
  7. CLOPIDOGRIL [Concomitant]
  8. . [Concomitant]
  9. PROTONIX [Concomitant]
  10. ASPIRIN [Concomitant]
  11. PENTOBARBITAL DRIP [Concomitant]
  12. FOSPHENYTOIN [Concomitant]
  13. LEVETIRACETAM [Concomitant]

REACTIONS (6)
  - HYPOTENSION [None]
  - CARDIAC ARREST [None]
  - ATRIOVENTRICULAR BLOCK FIRST DEGREE [None]
  - VENTRICULAR TACHYCARDIA [None]
  - PULSELESS ELECTRICAL ACTIVITY [None]
  - BUNDLE BRANCH BLOCK LEFT [None]
